FAERS Safety Report 7048882-1 (Version None)
Quarter: 2010Q4

REPORT INFORMATION
  Report Type: 
  Country: None (occurrence: None)
  Receive Date: 20101018
  Receipt Date: 20101006
  Transmission Date: 20110411
  Serious: Yes (Disabling, Other)
  Sender: FDA-Public Use
  Company Number: DE-ELI_LILLY_AND_COMPANY-DE201010001026

PATIENT
  Age: 72 Year
  Sex: Female

DRUGS (11)
  1. FORTEO [Suspect]
     Indication: OSTEOPOROSIS
     Dosage: UNK, DAILY (1/D)
     Route: 058
     Dates: start: 20090105
  2. CALCIUM [Concomitant]
     Dosage: UNK, UNKNOWN
     Route: 065
  3. VITAMIN D [Concomitant]
     Dosage: UNK, UNKNOWN
     Route: 065
  4. INSIDON [Concomitant]
     Dosage: UNK, UNKNOWN
     Route: 065
  5. TORASEMID [Concomitant]
     Dosage: UNK, UNKNOWN
     Route: 065
  6. L-THYROX JOD HEXAL [Concomitant]
     Dosage: 88-150 UNK, UNKNOWN
     Route: 065
  7. ASPIRIN [Concomitant]
     Dosage: 100 UNK, UNKNOWN
     Route: 065
  8. ALLOPURINOL [Concomitant]
     Indication: GOUT
     Dosage: UNK, UNKNOWN
     Route: 065
  9. INDOMETHACIN SODIUM [Concomitant]
     Indication: GOUT
     Dosage: 50 UNK, UNKNOWN
     Route: 065
  10. MCP [Concomitant]
     Dosage: UNK, UNKNOWN
     Route: 065
  11. FENTANYL [Concomitant]
     Dosage: 50 UG, EVERY THIRD DAY
     Route: 065

REACTIONS (2)
  - ABASIA [None]
  - PAIN IN EXTREMITY [None]
